FAERS Safety Report 7769220-2 (Version None)
Quarter: 2011Q3

REPORT INFORMATION
  Report Type: 
  Country: None (occurrence: None)
  Receive Date: 20110922
  Receipt Date: 20110914
  Transmission Date: 20111222
  Serious: Yes (Hospitalization)
  Sender: FDA-Public Use
  Company Number: FR-MPIJNJ-2011-04350

PATIENT

DRUGS (10)
  1. EPREX [Concomitant]
     Indication: ANAEMIA
     Dosage: UNK
     Route: 042
     Dates: start: 20110812
  2. DEXAMETHASONE [Suspect]
     Indication: MULTIPLE MYELOMA
     Dosage: 20 MG, CYCLIC
     Dates: start: 20110906, end: 20110910
  3. ZELITREX                           /01269701/ [Concomitant]
     Indication: INFECTION PROPHYLAXIS
     Dosage: 500 UNK, UNK
     Route: 048
     Dates: start: 20110812
  4. REVLIMID [Suspect]
     Indication: MULTIPLE MYELOMA
     Dosage: 25 MG, CYCLIC
     Dates: start: 20110906, end: 20110912
  5. SPECIAFOLDINE [Concomitant]
     Indication: ANAEMIA
     Dosage: 5 MG, UNK
     Route: 048
     Dates: start: 20110830
  6. ORACILLINE                         /00001801/ [Concomitant]
     Indication: INFECTION PROPHYLAXIS
     Dosage: UNK
     Route: 048
     Dates: start: 20110812
  7. VELCADE [Suspect]
     Indication: MULTIPLE MYELOMA
     Dosage: 2.6 MG, CYCLIC
     Dates: start: 20110906, end: 20110909
  8. INNOHEP [Concomitant]
     Indication: THROMBOSIS PROPHYLAXIS
     Dosage: UNK
     Route: 042
     Dates: start: 20110812
  9. BACTRIM [Concomitant]
     Indication: INFECTION PROPHYLAXIS
     Dosage: 80 UNK, UNK
     Route: 048
     Dates: start: 20110830
  10. LEXOMIL [Concomitant]
     Indication: ANXIETY
     Dosage: 6 MG, UNK
     Route: 048
     Dates: start: 20110812

REACTIONS (3)
  - ABDOMINAL PAIN [None]
  - ASCITES [None]
  - ABDOMINAL DISTENSION [None]
